FAERS Safety Report 4863442-6 (Version None)
Quarter: 2005Q4

REPORT INFORMATION
  Report Type: 
  Country: None (occurrence: None)
  Receive Date: 20051222
  Receipt Date: 20050126
  Transmission Date: 20060501
  Serious: No
  Sender: FDA-Public Use
  Company Number: US-GLAXOSMITHKLINE-A0542437A

PATIENT
  Age: 85 Year
  Sex: Female

DRUGS (12)
  1. FLONASE [Suspect]
     Dosage: 1SPR PER DAY
     Route: 045
  2. SYNTHROID [Concomitant]
  3. CELEBREX [Concomitant]
  4. ZETIA [Concomitant]
  5. CENTRUM SILVER [Concomitant]
  6. FISH OIL [Concomitant]
  7. BENADRYL [Concomitant]
  8. CALCIUM GLUCONATE [Concomitant]
  9. GLUCOSAMINE [Concomitant]
     Route: 065
  10. ASPIRIN [Concomitant]
  11. TINACTIN [Concomitant]
     Route: 065
  12. CHONDROITIN [Concomitant]
     Route: 065

REACTIONS (2)
  - EPISTAXIS [None]
  - RHINALGIA [None]
